FAERS Safety Report 5148732-4 (Version None)
Quarter: 2006Q4

REPORT INFORMATION
  Report Type: 
  Country: None (occurrence: None)
  Receive Date: 20061107
  Receipt Date: 20061024
  Transmission Date: 20070319
  Serious: Yes (Hospitalization)
  Sender: FDA-Public Use
  Company Number: 2006BI015455

PATIENT
  Age: 36 Year
  Sex: Male

DRUGS (1)
  1. AVONEX [Suspect]
     Indication: MULTIPLE SCLEROSIS
     Dosage: 30 UG QW IM
     Route: 030
     Dates: start: 20060724

REACTIONS (5)
  - BLADDER DISORDER [None]
  - CONDITION AGGRAVATED [None]
  - DYSURIA [None]
  - MULTIPLE SCLEROSIS [None]
  - URINARY RETENTION [None]
